FAERS Safety Report 20711436 (Version 1)
Quarter: 2022Q2

REPORT INFORMATION
  Report Type: Spontaneous
  Country: US (occurrence: None)
  Receive Date: 20220414
  Receipt Date: 20220414
  Transmission Date: 20220720
  Serious: Yes (Hospitalization)
  Sender: FDA-Public Use
  Company Number: None

PATIENT
  Age: 63 Year
  Sex: Male

DRUGS (14)
  1. PROMACTA [Suspect]
     Active Substance: ELTROMBOPAG OLAMINE
     Indication: Thrombocytopenia
     Dosage: FREQUENCY : DAILY;?
     Route: 048
  2. BISACODY EC [Concomitant]
  3. CARAFATE [Concomitant]
     Active Substance: SUCRALFATE
  4. COREG FEROUS SULFATE [Concomitant]
  5. GABAPENTIN HYDROXYZINE HCI [Concomitant]
  6. MULTIVITAMIN ADULTS [Concomitant]
  7. NOVOLOG [Concomitant]
     Active Substance: INSULIN ASPART
  8. ONDANSETRON [Concomitant]
     Active Substance: ONDANSETRON
  9. OYSTER SHELL [Concomitant]
  10. CALCIUM [Concomitant]
     Active Substance: CALCIUM
  11. PANTOPRAZOLE [Concomitant]
  12. SODIUM SENNA [Concomitant]
  13. UNSPECIFIED INGREDIENT [Concomitant]
     Active Substance: UNSPECIFIED INGREDIENT
  14. SODIUM BICARBONATE XIFAXAN [Concomitant]

REACTIONS (1)
  - Gastrointestinal haemorrhage [None]
